FAERS Safety Report 10956381 (Version 1)
Quarter: 2015Q1

REPORT INFORMATION
  Report Type: Spontaneous
  Country: US (occurrence: US)
  Receive Date: 20150326
  Receipt Date: 20150326
  Transmission Date: 20150721
  Serious: Yes (Death)
  Sender: FDA-Public Use
  Company Number: US-CIPLA LTD.-2015US02358

PATIENT

DRUGS (6)
  1. DILTIAZEM [Suspect]
     Active Substance: DILTIAZEM
  2. ZOLPIDEM TARTARATE [Suspect]
     Active Substance: ZOLPIDEM TARTRATE
  3. ATENOLOL. [Suspect]
     Active Substance: ATENOLOL
  4. ALPRAZOLAM. [Suspect]
     Active Substance: ALPRAZOLAM
  5. LORAZEPAM. [Suspect]
     Active Substance: LORAZEPAM
  6. HYDROCHLOROTHIAZIDE. [Suspect]
     Active Substance: HYDROCHLOROTHIAZIDE

REACTIONS (1)
  - Completed suicide [Fatal]
